FAERS Safety Report 4608949-1 (Version None)
Quarter: 2005Q1

REPORT INFORMATION
  Report Type: 
  Country: None (occurrence: None)
  Receive Date: 20050311
  Receipt Date: 20050225
  Transmission Date: 20050727
  Serious: Yes (Death, Hospitalization)
  Sender: FDA-Public Use
  Company Number: 2000-BP-00009

PATIENT
  Age: 26 Year
  Sex: Female
  Weight: 59 kg

DRUGS (3)
  1. VIRAMUNE [Suspect]
     Indication: HIV INFECTION
     Dosage: 400 MG (200 MG, 1 TAB BID), PO
     Route: 048
     Dates: start: 19991124, end: 19991221
  2. D4T (STAVUDINE) (STAVUDINE) [Suspect]
     Indication: HIV INFECTION
     Dosage: 80 MG, PO
     Route: 048
     Dates: start: 19991124, end: 19991221
  3. EMTRICITABINE [Suspect]
     Indication: HIV INFECTION
     Dosage: PO
     Route: 048
     Dates: start: 19991124, end: 19991221

REACTIONS (31)
  - ASTHENIA [None]
  - BACTERIA STOOL IDENTIFIED [None]
  - BLOOD AMYLASE INCREASED [None]
  - BLOOD CREATININE INCREASED [None]
  - BLOOD CULTURE POSITIVE [None]
  - CARDIAC ARREST [None]
  - CHILLS [None]
  - DRUG TOXICITY [None]
  - EOSINOPHIL COUNT INCREASED [None]
  - GENERAL PHYSICAL HEALTH DETERIORATION [None]
  - HAEMATURIA [None]
  - HEPATITIS [None]
  - HEPATOMEGALY [None]
  - INFECTION [None]
  - INTERNATIONAL NORMALISED RATIO INCREASED [None]
  - LIPASE INCREASED [None]
  - MUSCULOSKELETAL STIFFNESS [None]
  - NEPHRITIS [None]
  - PLATELET COUNT DECREASED [None]
  - PNEUMONIA [None]
  - PROTEINURIA [None]
  - RESPIRATORY DISTRESS [None]
  - RETROVIRAL INFECTION [None]
  - SALMONELLOSIS [None]
  - STAPHYLOCOCCAL INFECTION [None]
  - STREPTOCOCCAL INFECTION [None]
  - TACHYCARDIA [None]
  - TACHYPNOEA [None]
  - THERAPY NON-RESPONDER [None]
  - TREATMENT NONCOMPLIANCE [None]
  - VICTIM OF CRIME [None]
